FAERS Safety Report 14331984 (Version 1)
Quarter: 2017Q4

REPORT INFORMATION
  Report Type: Spontaneous
  Country: US (occurrence: US)
  Receive Date: 20171227
  Receipt Date: 20171227
  Transmission Date: 20180321
  Serious: Yes (Life-Threatening)
  Sender: FDA-Public Use
  Company Number: None

PATIENT
  Age: 50 Year
  Sex: Male
  Weight: 105.75 kg

DRUGS (1)
  1. ROLAPITANT [Suspect]
     Active Substance: ROLAPITANT
     Indication: CHOLANGIOCARCINOMA
     Dosage: ?          OTHER FREQUENCY:TIMES ONE;?
     Route: 041
     Dates: start: 20171227, end: 20171227

REACTIONS (12)
  - Feeling hot [None]
  - Flushing [None]
  - Blood pressure decreased [None]
  - Cough [None]
  - Hiccups [None]
  - Therapy cessation [None]
  - Musculoskeletal pain [None]
  - Agitation [None]
  - Abdominal pain [None]
  - Chest pain [None]
  - Nausea [None]
  - Vomiting [None]

NARRATIVE: CASE EVENT DATE: 20171227
